FAERS Safety Report 17127109 (Version 2)
Quarter: 2019Q4

REPORT INFORMATION
  Report Type: Spontaneous
  Country: CA (occurrence: CA)
  Receive Date: 20191209
  Receipt Date: 20191221
  Transmission Date: 20200122
  Serious: Yes (Hospitalization, Other)
  Sender: FDA-Public Use
  Company Number: CA-ROCHE-2491035

PATIENT
  Age: 36 Year
  Sex: Female

DRUGS (5)
  1. XOLAIR [Suspect]
     Active Substance: OMALIZUMAB
     Indication: CHRONIC SPONTANEOUS URTICARIA
     Route: 058
     Dates: start: 20191022
  2. MONTELUKAST [Concomitant]
     Active Substance: MONTELUKAST SODIUM
     Indication: PRODUCT USED FOR UNKNOWN INDICATION
     Route: 048
  3. BENADRYL [Concomitant]
     Active Substance: DIPHENHYDRAMINE HYDROCHLORIDE
     Indication: PRODUCT USED FOR UNKNOWN INDICATION
     Dosage: 1 DF, PRN (50-100 MG)
     Route: 048
  4. GRAVOL [Concomitant]
     Active Substance: DIMENHYDRINATE
     Indication: CHRONIC SPONTANEOUS URTICARIA
     Route: 048
  5. REACTINE [CETIRIZINE HYDROCHLORIDE] [Concomitant]
     Active Substance: CETIRIZINE HYDROCHLORIDE
     Indication: PRODUCT USED FOR UNKNOWN INDICATION
     Route: 048

REACTIONS (10)
  - Staphylococcal infection [Unknown]
  - Device related infection [Unknown]
  - Deep vein thrombosis [Unknown]
  - Hypersensitivity [Unknown]
  - Paranasal sinus haematoma [Unknown]
  - Haematoma infection [Unknown]
  - Bronchitis viral [Unknown]
  - Haematoma [Unknown]
  - Immunodeficiency [Unknown]
  - Sinusitis [Unknown]

NARRATIVE: CASE EVENT DATE: 20191022
